FAERS Safety Report 7775868-1 (Version None)
Quarter: 2011Q3

REPORT INFORMATION
  Report Type: 
  Country: None (occurrence: None)
  Receive Date: 20110923
  Receipt Date: 20110919
  Transmission Date: 20111222
  Serious: Yes (Hospitalization)
  Sender: FDA-Public Use
  Company Number: US-ABBOTT-11P-163-0856652-00

PATIENT
  Sex: Male
  Weight: 95.34 kg

DRUGS (1)
  1. HUMIRA [Suspect]
     Indication: RHEUMATOID ARTHRITIS
     Dates: start: 20110201, end: 20110701

REACTIONS (7)
  - FEELING COLD [None]
  - HYPOTENSION [None]
  - FAECAL INCONTINENCE [None]
  - CHROMATURIA [None]
  - COLD SWEAT [None]
  - LOSS OF CONSCIOUSNESS [None]
  - UROSEPSIS [None]
